FAERS Safety Report 5399037-8 (Version None)
Quarter: 2007Q3

REPORT INFORMATION
  Report Type: 
  Country: None (occurrence: None)
  Receive Date: 20070727
  Receipt Date: 20070704
  Transmission Date: 20080115
  Serious: Yes (Other)
  Sender: FDA-Public Use
  Company Number: PHRM2007FR01814

PATIENT
  Age: 69 Year
  Sex: Male

DRUGS (4)
  1. GLEEVEC [Suspect]
     Indication: CHRONIC MYELOID LEUKAEMIA
     Dosage: 400 MG, QD
     Route: 048
     Dates: start: 20040101
  2. ATORVASTATIN CALCIUM [Suspect]
     Dosage: 40 MG, QD
     Route: 048
     Dates: start: 20070401
  3. KARDEGIC [Concomitant]
  4. BETA BLOCKING AGENTS [Concomitant]

REACTIONS (3)
  - ARTERIOSCLEROSIS CORONARY ARTERY [None]
  - DRUG INTERACTION [None]
  - MYALGIA [None]
